FAERS Safety Report 5391172-3 (Version None)
Quarter: 2007Q3

REPORT INFORMATION
  Report Type: 
  Country: None (occurrence: None)
  Receive Date: 20070719
  Receipt Date: 20070705
  Transmission Date: 20080115
  Serious: Yes (Hospitalization)
  Sender: FDA-Public Use
  Company Number: US-TYCO HEALTHCARE/MALLINCKRODT-T200700773

PATIENT

DRUGS (14)
  1. ACETAMINOPHEN AND CODEINE PHOSPHATE [Suspect]
     Indication: PAIN
     Dosage: 650 MG, PRN
     Route: 048
     Dates: start: 20061020, end: 20061023
  2. INVESTIGATIONAL DRUG [Suspect]
     Indication: PERCUTANEOUS CORONARY INTERVENTION
     Dosage: 5.8 ML, BOLUS
     Route: 040
     Dates: start: 20061020, end: 20061020
  3. INVESTIGATIONAL DRUG [Suspect]
     Route: 042
     Dates: start: 20061020, end: 20061020
  4. INVESTIGATIONAL DRUG [Suspect]
     Dosage: UNK, SINGLE
     Route: 048
     Dates: start: 20061020, end: 20061020
  5. INVESTIGATIONAL DRUG [Suspect]
     Dosage: UNK, SINGLE
     Route: 048
     Dates: start: 20061020, end: 20061020
  6. FUROSEMIDE [Suspect]
     Indication: FLUID OVERLOAD
     Dosage: 40 MG, SINGLE
     Route: 042
     Dates: start: 20061020, end: 20061020
  7. IRBESARTAN [Concomitant]
  8. HEPARIN [Concomitant]
  9. CLOPIDOGREL [Concomitant]
     Dates: start: 20061016, end: 20061020
  10. METOPROLOL TARTRATE [Concomitant]
     Dates: start: 20061020
  11. METOPROLOL TARTRATE [Concomitant]
     Dosage: 4 CAPSULES
     Route: 048
     Dates: start: 20061020, end: 20061020
  12. METOPROLOL TARTRATE [Concomitant]
     Dosage: 4CAPSULES, SINGLE
     Route: 048
     Dates: start: 20061020, end: 20061020
  13. METOPROLOL TARTRATE [Concomitant]
     Dosage: 4CAPSULES, SINGLE
     Route: 048
     Dates: start: 20061020, end: 20061020
  14. METOPROLOL TARTRATE [Concomitant]
     Dosage: 4 CAPSULES
     Route: 048
     Dates: start: 20061020, end: 20061020

REACTIONS (5)
  - ABDOMINAL DISTENSION [None]
  - ABDOMINAL TENDERNESS [None]
  - BLOOD CREATININE INCREASED [None]
  - CONSTIPATION [None]
  - VOMITING [None]
